FAERS Safety Report 6039085-8 (Version None)
Quarter: 2009Q1

REPORT INFORMATION
  Report Type: 
  Country: None (occurrence: None)
  Receive Date: 20090115
  Receipt Date: 20090105
  Transmission Date: 20090719
  Serious: Yes (Other)
  Sender: FDA-Public Use
  Company Number: GB-PFIZER INC-2009153076

PATIENT

DRUGS (2)
  1. PHENYTOIN SODIUM CAP [Suspect]
     Indication: CONVULSION
     Dosage: UNK
     Route: 048
  2. TRILEPTAL [Suspect]
     Dosage: 300 MG, 2X/DAY
     Route: 048

REACTIONS (5)
  - ALOPECIA [None]
  - CONVULSION [None]
  - GINGIVAL RECESSION [None]
  - GINGIVAL SWELLING [None]
  - HAIR TEXTURE ABNORMAL [None]
